FAERS Safety Report 14389036 (Version 2)
Quarter: 2019Q3

REPORT INFORMATION
  Report Type: Spontaneous
  Country: US (occurrence: US)
  Receive Date: 20180115
  Receipt Date: 20190731
  Transmission Date: 20191004
  Serious: Yes (Other)
  Sender: FDA-Public Use
  Company Number: US-SA-2017SA226982

PATIENT
  Age: 65 Year
  Sex: Female
  Weight: 86 kg

DRUGS (8)
  1. CYTOXAN [Concomitant]
     Active Substance: CYCLOPHOSPHAMIDE
     Indication: BREAST CANCER FEMALE
     Route: 042
  2. TAXOTERE [Suspect]
     Active Substance: DOCETAXEL
     Dosage: 137 MG,QW
     Route: 042
     Dates: start: 20140623, end: 20140623
  3. ANASTROZOLE. [Concomitant]
     Active Substance: ANASTROZOLE
     Dosage: UNK
     Route: 042
     Dates: start: 20140825, end: 20170306
  4. TAXOTERE [Suspect]
     Active Substance: DOCETAXEL
     Indication: BREAST CANCER FEMALE
     Dosage: 137 MG,QW
     Route: 042
     Dates: start: 20140421, end: 20140421
  5. RANITIDINE. [Concomitant]
     Active Substance: RANITIDINE
     Dosage: UNK UNK,UNK
     Route: 042
     Dates: start: 20130201
  6. BECLOMETASONE [Concomitant]
     Active Substance: BECLOMETHASONE DIPROPIONATE
     Dosage: UNK UNK,UNK
     Route: 042
     Dates: start: 20130201
  7. NEOSAR [Concomitant]
     Active Substance: CYCLOPHOSPHAMIDE
     Indication: BREAST CANCER FEMALE
     Route: 042
  8. PROAIR HFA [Concomitant]
     Active Substance: ALBUTEROL SULFATE
     Dosage: UNK UNK,UNK
     Route: 042
     Dates: start: 20130201

REACTIONS (2)
  - Alopecia [Recovering/Resolving]
  - Psychological trauma [Unknown]

NARRATIVE: CASE EVENT DATE: 201404
